FAERS Safety Report 8457712-2 (Version None)
Quarter: 2012Q2

REPORT INFORMATION
  Report Type: 
  Country: None (occurrence: None)
  Receive Date: 20120618
  Receipt Date: 20120618
  Transmission Date: 20120825
  Serious: Yes (Other)
  Sender: FDA-Public Use
  Company Number: None

PATIENT

DRUGS (1)
  1. INTENSE 2-4 PUMPS K.Y [Suspect]
     Dates: start: 20120615, end: 20120616

REACTIONS (2)
  - LIP SWELLING [None]
  - ORAL DISCOMFORT [None]
